FAERS Safety Report 9170228 (Version 1)
Quarter: 2013Q1

REPORT INFORMATION
  Report Type: Spontaneous
  Country: US (occurrence: None)
  Receive Date: 20130315
  Receipt Date: 20130315
  Transmission Date: 20140127
  Serious: Yes (Other)
  Sender: FDA-Public Use
  Company Number: None

PATIENT
  Age: 17 Year
  Sex: Female
  Weight: 40.82 kg

DRUGS (1)
  1. AZITHROMYCIN [Suspect]
     Route: 048
     Dates: start: 20130201

REACTIONS (2)
  - Hypophagia [None]
  - Vomiting [None]
